FAERS Safety Report 5808768-4 (Version None)
Quarter: 2008Q3

REPORT INFORMATION
  Report Type: 
  Country: None (occurrence: None)
  Receive Date: 20080710
  Receipt Date: 20080710
  Transmission Date: 20090109
  Serious: Yes (Other)
  Sender: FDA-Public Use
  Company Number: None

PATIENT
  Age: 2 Year
  Sex: Male
  Weight: 12.7007 kg

DRUGS (2)
  1. COPPERTONE WATER BABIES LOTION 50 SPF [Suspect]
     Indication: PROPHYLAXIS
     Dosage: 10.64 FL OZ ONCE TOP
     Route: 061
     Dates: start: 20080704, end: 20080704
  2. COPPERTONE WATER BABIES LOTION 50 SPF [Suspect]
     Indication: SKIN DISORDER
     Dosage: 10.64 FL OZ ONCE TOP
     Route: 061
     Dates: start: 20080704, end: 20080704

REACTIONS (8)
  - EYE IRRITATION [None]
  - IRRITABILITY [None]
  - LACRIMATION INCREASED [None]
  - OCULAR HYPERAEMIA [None]
  - PHARMACEUTICAL PRODUCT COMPLAINT [None]
  - PRURITUS [None]
  - RASH [None]
  - URTICARIA [None]
